FAERS Safety Report 8515251 (Version 4)
Quarter: 2012Q4

REPORT INFORMATION
  Report Type: 
  Country: US (occurrence: US)
  Receive Date: 20120417
  Receipt Date: 20120903
  Transmission Date: 20130627
  Serious: No
  Sender: FDA-Public Use
  Company Number: US-BAYER-2012-036544

PATIENT

DRUGS (1)
  1. MAGNEVIST [Suspect]
     Indication: SCAN BRAIN
     Dosage: 20 Not appl., UNK

REACTIONS (1)
  - Vomiting [Unknown]
